FAERS Safety Report 5087676-3 (Version None)
Quarter: 2006Q3

REPORT INFORMATION
  Report Type: 
  Country: None (occurrence: None)
  Receive Date: 20060823
  Receipt Date: 20060823
  Transmission Date: 20061208
  Serious: Yes (Life-Threatening)
  Sender: FDA-Public Use
  Company Number: None

PATIENT
  Age: 41 Year
  Sex: Female
  Weight: 54.4316 kg

DRUGS (3)
  1. MAGNEVIST [Suspect]
     Indication: MULTIPLE SCLEROSIS
     Dosage: 12 CC VIA 23 G BUTTERFLY (HAND)
     Dates: start: 20060406
  2. MAGNEVIST [Suspect]
     Indication: NUCLEAR MAGNETIC RESONANCE IMAGING
     Dosage: 12 CC VIA 23 G BUTTERFLY (HAND)
     Dates: start: 20060406
  3. ASA/MOTRIN [Concomitant]

REACTIONS (2)
  - ANAPHYLACTIC REACTION [None]
  - CONVULSION [None]
